FAERS Safety Report 11829933 (Version 1)
Quarter: 2015Q4

REPORT INFORMATION
  Report Type: Spontaneous
  Country: SE (occurrence: SE)
  Receive Date: 20151213
  Receipt Date: 20151213
  Transmission Date: 20160305
  Serious: Yes (Hospitalization)
  Sender: FDA-Public Use
  Company Number: SE-ASTRAZENECA-2015SF22757

PATIENT
  Age: 83 Year
  Sex: Male

DRUGS (9)
  1. ALVEDON [Concomitant]
     Active Substance: ACETAMINOPHEN
     Dates: start: 20151022
  2. ATORVASTATIN [Concomitant]
     Active Substance: ATORVASTATIN
     Dates: start: 20151022
  3. SPIRONOLACTONE. [Concomitant]
     Active Substance: SPIRONOLACTONE
     Dates: start: 20151022
  4. BRILIQUE [Suspect]
     Active Substance: TICAGRELOR
     Route: 048
  5. STILNOCT [Concomitant]
     Active Substance: ZOLPIDEM TARTRATE
     Dates: start: 20151022
  6. FINASTERIDE. [Concomitant]
     Active Substance: FINASTERIDE
     Dosage: ACTAVIS
     Dates: start: 20151022
  7. TROMBYL [Suspect]
     Active Substance: ASPIRIN
     Route: 065
  8. CANDESARTAN [Concomitant]
     Active Substance: CANDESARTAN
     Dosage: ACTAVIS
     Dates: start: 20151022
  9. FURIX [Concomitant]
     Active Substance: FUROSEMIDE
     Dates: start: 20151022

REACTIONS (5)
  - Anaemia [Unknown]
  - Laboratory test abnormal [Unknown]
  - Dizziness postural [Unknown]
  - General physical health deterioration [Unknown]
  - Epistaxis [Unknown]

NARRATIVE: CASE EVENT DATE: 20151022
